FAERS Safety Report 8115993-9 (Version None)
Quarter: 2012Q1

REPORT INFORMATION
  Report Type: 
  Country: None (occurrence: None)
  Receive Date: 20120206
  Receipt Date: 20120131
  Transmission Date: 20120608
  Serious: Yes (Death)
  Sender: FDA-Public Use
  Company Number: US-ROCHE-1036749

PATIENT
  Sex: Male
  Weight: 85.352 kg

DRUGS (1)
  1. PEGASYS [Suspect]
     Indication: PRODUCT USED FOR UNKNOWN INDICATION

REACTIONS (6)
  - AGITATION [None]
  - CARDIO-RESPIRATORY ARREST [None]
  - MYALGIA [None]
  - SCIATICA [None]
  - ANAEMIA [None]
  - ARTHRALGIA [None]
